FAERS Safety Report 8889345 (Version 1)
Quarter: 2012Q4

REPORT INFORMATION
  Report Type: Spontaneous
  Country: US (occurrence: None)
  Receive Date: 20121102
  Receipt Date: 20121102
  Transmission Date: 20130627
  Serious: Yes (Life-Threatening, Hospitalization)
  Sender: FDA-Public Use
  Company Number: None

PATIENT
  Age: 51 Year
  Sex: Female
  Weight: 58.97 kg

DRUGS (1)
  1. ULTRAM [Suspect]

REACTIONS (23)
  - Urticaria [None]
  - Insomnia [None]
  - Dizziness [None]
  - Syncope [None]
  - Loss of consciousness [None]
  - Amnesia [None]
  - Hypotension [None]
  - Heart rate decreased [None]
  - Oxygen saturation decreased [None]
  - Chills [None]
  - Pyrexia [None]
  - Dyspnoea [None]
  - Lethargy [None]
  - Skin haemorrhage [None]
  - Balance disorder [None]
  - Asthenia [None]
  - Nausea [None]
  - Vomiting [None]
  - Malaise [None]
  - Respiratory failure [None]
  - Hepatic enzyme increased [None]
  - Pain [None]
  - Gallbladder disorder [None]
